FAERS Safety Report 7163214-6 (Version None)
Quarter: 2010Q4

REPORT INFORMATION
  Report Type: 
  Country: None (occurrence: None)
  Receive Date: 20101215
  Receipt Date: 20100315
  Transmission Date: 20110411
  Serious: Yes (Disabling)
  Sender: FDA-Public Use
  Company Number: DE-PFIZER INC-2010032990

PATIENT
  Age: 41 Year
  Sex: Female

DRUGS (2)
  1. LYRICA [Suspect]
     Indication: ANXIETY
     Dosage: 75 MG DAILY
     Route: 048
     Dates: end: 20100201
  2. LYRICA [Suspect]
     Indication: PANIC DISORDER

REACTIONS (8)
  - ANXIETY [None]
  - DEPRESSION [None]
  - EYE PAIN [None]
  - HEADACHE [None]
  - RESTLESSNESS [None]
  - SLEEP DISORDER [None]
  - VISUAL ACUITY TESTS ABNORMAL [None]
  - WITHDRAWAL SYNDROME [None]
